FAERS Safety Report 12026030 (Version 2)
Quarter: 2017Q3

REPORT INFORMATION
  Report Type: Report from Study
  Country: None (occurrence: US)
  Receive Date: 20160206
  Receipt Date: 20170927
  Transmission Date: 20171127
  Serious: Yes (Hospitalization, Other)
  Sender: FDA-Public Use
  Company Number: US-ABBVIE-15K-163-1486045-00

PATIENT
  Age: 55 Year
  Sex: Male
  Weight: 111.68 kg

DRUGS (2)
  1. HUMIRA [Suspect]
     Active Substance: ADALIMUMAB
     Indication: CROHN^S DISEASE
     Route: 058
     Dates: start: 2017
  2. HUMIRA [Suspect]
     Active Substance: ADALIMUMAB
     Indication: COLITIS ULCERATIVE
     Route: 058
     Dates: start: 2013, end: 201706

REACTIONS (13)
  - Vitamin D deficiency [Not Recovered/Not Resolved]
  - Post procedural haematoma [Recovering/Resolving]
  - Blood albumin decreased [Recovering/Resolving]
  - Post procedural haemorrhage [Recovering/Resolving]
  - Hepatic failure [Recovering/Resolving]
  - Hyperkalaemia [Not Recovered/Not Resolved]
  - Injection site pain [Recovered/Resolved]
  - Post procedural complication [Not Recovered/Not Resolved]
  - Anaemia [Not Recovered/Not Resolved]
  - Hypoaesthesia [Not Recovered/Not Resolved]
  - Cholangitis sclerosing [Recovering/Resolving]
  - Weight increased [Recovered/Resolved]
  - Liver transplant rejection [Unknown]

NARRATIVE: CASE EVENT DATE: 2013
